FAERS Safety Report 20900243 (Version 1)
Quarter: 2022Q2

REPORT INFORMATION
  Report Type: Spontaneous
  Country: US (occurrence: US)
  Receive Date: 20220601
  Receipt Date: 20220601
  Transmission Date: 20220721
  Serious: Yes (Life-Threatening, Hospitalization, Other)
  Sender: FDA-Public Use
  Company Number: US-GLENMARK PHARMACEUTICALS-2014GMK011044

PATIENT
  Age: 26 Year
  Sex: Female

DRUGS (4)
  1. DILTIAZEM HYDROCHLORIDE [Interacting]
     Active Substance: DILTIAZEM HYDROCHLORIDE
     Indication: Atrial tachycardia
     Dosage: UNK
     Route: 048
  2. DILTIAZEM HYDROCHLORIDE [Interacting]
     Active Substance: DILTIAZEM HYDROCHLORIDE
     Indication: Suicide attempt
     Dosage: 2400 MILLIGRAM, IN TOTAL (INGESTED 80 TABLETS (30 MG))
     Route: 048
  3. METOPROLOL [Interacting]
     Active Substance: METOPROLOL
     Indication: Atrial tachycardia
     Dosage: UNK
     Route: 048
  4. METOPROLOL [Interacting]
     Active Substance: METOPROLOL
     Indication: Suicide attempt
     Dosage: 25 MILLIGRAM, UNK (INGESTED A NEARLY FULL BOTTLE OF METOPROLOL TARTRATE (25) TABLETS)
     Route: 048

REACTIONS (9)
  - Pulmonary oedema [Recovered/Resolved]
  - Neurological symptom [Recovering/Resolving]
  - Toxicity to various agents [Unknown]
  - Drug interaction [Unknown]
  - Intentional overdose [Unknown]
  - Bradyarrhythmia [Recovered/Resolved]
  - Hypotension [Recovered/Resolved]
  - Bradycardia [Recovering/Resolving]
  - Cardiac arrest [Recovered/Resolved]
